FAERS Safety Report 7658507-X (Version None)
Quarter: 2011Q3

REPORT INFORMATION
  Report Type: 
  Country: None (occurrence: None)
  Receive Date: 20110802
  Receipt Date: 20110720
  Transmission Date: 20111222
  Serious: Yes (Death)
  Sender: FDA-Public Use
  Company Number: TPA2011A04235

PATIENT
  Age: 51 Year
  Sex: Female

DRUGS (1)
  1. DEXILANT [Suspect]
     Dosage: 60 MG, 1 IN 1 D

REACTIONS (1)
  - DEATH [None]
